FAERS Safety Report 5944772-3 (Version None)
Quarter: 2008Q4

REPORT INFORMATION
  Report Type: 
  Country: None (occurrence: None)
  Receive Date: 20081106
  Receipt Date: 20081106
  Transmission Date: 20090506
  Serious: Yes (Other)
  Sender: FDA-Public Use
  Company Number: None

PATIENT
  Age: 59 Year
  Sex: Female
  Weight: 74.8435 kg

DRUGS (2)
  1. LEVAQUIN [Suspect]
     Indication: PREOPERATIVE CARE
     Dosage: 1 TABLET DAILY FOR 7 DAYS PO
     Route: 048
     Dates: start: 20081021, end: 20081028
  2. PREDNISONE [Suspect]
     Indication: PREOPERATIVE CARE
     Dosage: 3 TABLETS DAILY FOR 7 DAYS PO
     Route: 048
     Dates: start: 20081021, end: 20081027

REACTIONS (6)
  - GAIT DISTURBANCE [None]
  - JOINT STIFFNESS [None]
  - JOINT SWELLING [None]
  - MOBILITY DECREASED [None]
  - POST PROCEDURAL COMPLICATION [None]
  - TENDON DISORDER [None]
